FAERS Safety Report 10379533 (Version 5)
Quarter: 2015Q3

REPORT INFORMATION
  Report Type: Other
  Country: JP (occurrence: JP)
  Receive Date: 20140808
  Receipt Date: 20150924
  Transmission Date: 20151125
  Serious: Yes (Other)
  Sender: FDA-Public Use
  Company Number: JP-20140300

PATIENT
  Age: 17 Year
  Sex: Female
  Weight: 56.8 kg

DRUGS (3)
  1. LIPIODOL [Suspect]
     Active Substance: ETHIODIZED OIL
     Indication: THERAPEUTIC EMBOLISATION
     Route: 013
     Dates: start: 20100810, end: 20100810
  2. HISTOACRYL [Concomitant]
     Active Substance: ENBUCRILATE
     Dates: start: 20100810, end: 20100810
  3. ETHANOL [Concomitant]
     Active Substance: ALCOHOL
     Dates: start: 20100810, end: 20100810

REACTIONS (3)
  - Calculus ureteric [Recovering/Resolving]
  - Haematuria [Recovering/Resolving]
  - Abdominal pain [Recovering/Resolving]

NARRATIVE: CASE EVENT DATE: 20140508
